FAERS Safety Report 12963271 (Version 1)
Quarter: 2016Q4

REPORT INFORMATION
  Report Type: Other
  Country: CA (occurrence: CA)
  Receive Date: 20161122
  Receipt Date: 20161122
  Transmission Date: 20170207
  Serious: Yes (Hospitalization)
  Sender: FDA-Public Use
  Company Number: CA-APOTEX-2016AP014613

PATIENT
  Sex: Male

DRUGS (1)
  1. APO-SALVENT [Suspect]
     Active Substance: ALBUTEROL
     Indication: ASTHMA
     Dosage: 8 DF, QD
     Route: 065

REACTIONS (2)
  - Product quality issue [Recovered/Resolved]
  - Dyspnoea [Recovered/Resolved]
